FAERS Safety Report 9556096 (Version 1)
Quarter: 2013Q3

REPORT INFORMATION
  Report Type: Spontaneous
  Country: US (occurrence: US)
  Receive Date: 20130926
  Receipt Date: 20130926
  Transmission Date: 20140515
  Serious: No
  Sender: FDA-Public Use
  Company Number: US-UPSHER-SMITH LABORATORIES, INC.-12003011

PATIENT
  Sex: 0

DRUGS (2)
  1. FORTICAL [Suspect]
     Indication: SPINAL COMPRESSION FRACTURE
     Dosage: 200 IU, UNK
     Route: 045
     Dates: start: 20121007, end: 20121023
  2. NONE REPORTED [Concomitant]

REACTIONS (2)
  - Back pain [Not Recovered/Not Resolved]
  - Arthralgia [Not Recovered/Not Resolved]
